FAERS Safety Report 21328092 (Version 1)
Quarter: 2022Q3

REPORT INFORMATION
  Report Type: Report from Study
  Country: CN (occurrence: None)
  Receive Date: 20220913
  Receipt Date: 20220913
  Transmission Date: 20221026
  Serious: Yes (Other)
  Sender: FDA-Public Use
  Company Number: 2022A311717

PATIENT
  Age: 33 Year
  Sex: Female
  Weight: 68 kg

DRUGS (3)
  1. BYETTA [Suspect]
     Active Substance: EXENATIDE
     Indication: Weight decreased
     Route: 058
     Dates: start: 2019
  2. BYETTA [Suspect]
     Active Substance: EXENATIDE
     Indication: Weight decreased
     Dosage: 5 MCG ONCE A DAY OR INTERMITTENTLY
     Route: 058
  3. BYETTA [Suspect]
     Active Substance: EXENATIDE
     Indication: Weight decreased
     Dosage: 10.0UG UNKNOWN
     Route: 058

REACTIONS (4)
  - Anaphylactic shock [Unknown]
  - Drug hypersensitivity [Unknown]
  - Injection site discomfort [Unknown]
  - Product use issue [Unknown]

NARRATIVE: CASE EVENT DATE: 20190101
